FAERS Safety Report 5794570-9 (Version None)
Quarter: 2008Q2

REPORT INFORMATION
  Report Type: 
  Country: None (occurrence: None)
  Receive Date: 20080626
  Receipt Date: 20080613
  Transmission Date: 20081010
  Serious: Yes (Hospitalization)
  Sender: FDA-Public Use
  Company Number: 2008RR-16001

PATIENT
  Age: 77 Year
  Sex: Female

DRUGS (7)
  1. ATENOLOL [Suspect]
     Dosage: 50 MG, QD
  2. DILTIAZEM [Suspect]
     Dosage: 90 MG, BID
  3. AMITRIPTLINE HYDROCHLORIDE TAB [Concomitant]
  4. ASPIRIN [Concomitant]
  5. BEZAFIBRATE (BEZAFIBRATE) [Concomitant]
  6. OMEPRAZOLE [Concomitant]
  7. RAMIPRIL [Concomitant]

REACTIONS (6)
  - BLOOD CREATININE INCREASED [None]
  - BRADYCARDIA [None]
  - FALL [None]
  - PALPITATIONS [None]
  - SINUS ARRHYTHMIA [None]
  - SYNCOPE [None]
